FAERS Safety Report 9870750 (Version 2)
Quarter: 2014Q1

REPORT INFORMATION
  Report Type: Spontaneous
  Country: US (occurrence: US)
  Receive Date: 20140205
  Receipt Date: 20140224
  Transmission Date: 20141002
  Serious: No
  Sender: FDA-Public Use
  Company Number: US-PFIZER INC-2014031116

PATIENT
  Age: 56 Year
  Sex: Female
  Weight: 86.17 kg

DRUGS (6)
  1. CELEBREX [Suspect]
     Indication: ARTHRITIS
     Dosage: 100 MG, DAILY
     Dates: end: 201401
  2. LYRICA [Suspect]
     Indication: FIBROMYALGIA
     Dosage: 50 MG, 2X/DAY
  3. LYRICA [Suspect]
     Dosage: 50 MG, AS NEEDED (DAILY OR TWO TIMES A DAY AS REQUIRED)
     Dates: end: 201401
  4. ZOLOFT [Concomitant]
     Dosage: 50 MG, 2X/DAY
  5. SKELAXIN [Concomitant]
     Indication: MUSCLE DISORDER
     Dosage: 800 MG, AS NEEDED
  6. SKELAXIN [Concomitant]
     Indication: ARTHROPATHY

REACTIONS (1)
  - Tooth disorder [Unknown]
